FAERS Safety Report 16638688 (Version 8)
Quarter: 2021Q3

REPORT INFORMATION
  Report Type: Report from Study
  Country: AR (occurrence: AR)
  Receive Date: 20190726
  Receipt Date: 20210721
  Transmission Date: 20211014
  Serious: Yes (Other)
  Sender: FDA-Public Use
  Company Number: PHHY2019AR170550

PATIENT
  Age: 54 Year
  Sex: Female

DRUGS (16)
  1. REVOLADE [Suspect]
     Active Substance: ELTROMBOPAG OLAMINE
     Dosage: 50 MG (A DAY IN BEETWEEN)
     Route: 048
     Dates: start: 20200301, end: 20200501
  2. REVOLADE [Suspect]
     Active Substance: ELTROMBOPAG OLAMINE
     Dosage: 50 MG
     Route: 048
  3. DORZOFLAX [Concomitant]
     Indication: PRODUCT USED FOR UNKNOWN INDICATION
     Dosage: UNK
     Route: 065
  4. REVOLADE [Suspect]
     Active Substance: ELTROMBOPAG OLAMINE
     Indication: IMMUNE THROMBOCYTOPENIA
     Dosage: 50 MG, QD
     Route: 065
     Dates: start: 20180101, end: 20180601
  5. DELTISONE [Concomitant]
     Indication: THROMBOCYTOPENIA
     Dosage: 40 MG, QD
     Route: 065
     Dates: start: 2012
  6. REVOLADE [Suspect]
     Active Substance: ELTROMBOPAG OLAMINE
     Dosage: 50 MG, BID (TWICE A DAILY)
     Route: 048
     Dates: start: 20180101
  7. FOLIC ACID. [Concomitant]
     Active Substance: FOLIC ACID
     Indication: PRODUCT USED FOR UNKNOWN INDICATION
     Dosage: 10 MG, QD
     Route: 065
  8. REVOLADE [Suspect]
     Active Substance: ELTROMBOPAG OLAMINE
     Dosage: 50 MG, QD
     Route: 065
     Dates: end: 201810
  9. REVOLADE [Suspect]
     Active Substance: ELTROMBOPAG OLAMINE
     Dosage: UNK
     Route: 065
     Dates: end: 20210601
  10. GLAUCOGESIC [Concomitant]
     Indication: PRODUCT USED FOR UNKNOWN INDICATION
     Dosage: UNK
     Route: 065
  11. REVOLADE [Suspect]
     Active Substance: ELTROMBOPAG OLAMINE
     Dosage: 50 MG, QD
     Route: 065
     Dates: start: 20190805
  12. REVOLADE [Suspect]
     Active Substance: ELTROMBOPAG OLAMINE
     Dosage: 50 MG, QD
     Route: 065
     Dates: start: 20210602
  13. CALCIUM [Suspect]
     Active Substance: CALCIUM
     Indication: OSTEOPOROSIS
     Dosage: UNK
     Route: 065
  14. DELTISONE [Concomitant]
     Dosage: 20 MG, QD
     Route: 065
     Dates: start: 201906
  15. ALENDRONATE [Concomitant]
     Active Substance: ALENDRONATE SODIUM
     Indication: OSTEOPOROSIS
     Dosage: 4 DF, QMO (STARTED 6 OR 7 YEARS AGO AND STOPPED 2 MONTHS AGO AS OF 01 OCT 2019)
     Route: 065
  16. OMEPRAZOLE. [Concomitant]
     Active Substance: OMEPRAZOLE
     Indication: PRODUCT USED FOR UNKNOWN INDICATION
     Dosage: UNK
     Route: 065

REACTIONS (22)
  - Cataract [Not Recovered/Not Resolved]
  - Dry mouth [Not Recovered/Not Resolved]
  - Paraesthesia [Unknown]
  - Hypokinesia [Recovered/Resolved]
  - Platelet count decreased [Not Recovered/Not Resolved]
  - Ear pain [Recovered/Resolved]
  - COVID-19 [Recovered/Resolved]
  - Feeling cold [Unknown]
  - Nasopharyngitis [Recovered/Resolved]
  - Visual impairment [Not Recovered/Not Resolved]
  - Anosmia [Recovered/Resolved]
  - Musculoskeletal discomfort [Unknown]
  - Product availability issue [Not Recovered/Not Resolved]
  - Gait disturbance [Unknown]
  - Cough [Not Recovered/Not Resolved]
  - Blindness [Not Recovered/Not Resolved]
  - Headache [Recovered/Resolved]
  - Decreased appetite [Recovered/Resolved]
  - Glaucoma [Recovering/Resolving]
  - Platelet count decreased [Recovered/Resolved]
  - Hypokinesia [Not Recovered/Not Resolved]
  - Hypoaesthesia [Recovered/Resolved]

NARRATIVE: CASE EVENT DATE: 20170101
